FAERS Safety Report 6272872-X (Version None)
Quarter: 2009Q3

REPORT INFORMATION
  Report Type: 
  Country: None (occurrence: None)
  Receive Date: 20090717
  Receipt Date: 20090707
  Transmission Date: 20100115
  Serious: Yes (Life-Threatening, Disabling)
  Sender: FDA-Public Use
  Company Number: FR-GENENTECH-286799

PATIENT
  Sex: Male

DRUGS (4)
  1. BEVACIZUMAB [Suspect]
     Indication: RECTAL CANCER
     Dosage: 360 MG, Q2W
     Route: 042
     Dates: start: 20081222, end: 20090511
  2. FLUOROURACIL [Suspect]
     Indication: RECTAL CANCER
     Dosage: 732.8 MG, Q2W
     Route: 042
     Dates: start: 20081222, end: 20090420
  3. FLUOROURACIL [Suspect]
     Dosage: 206 MG, 5/WEEK
     Route: 042
     Dates: start: 20090420, end: 20090518
  4. OXALIPLATIN [Suspect]
     Indication: RECTAL CANCER
     Dosage: 183.2 MG, Q2W
     Route: 042
     Dates: start: 20081222, end: 20090302

REACTIONS (1)
  - OSTEONECROSIS [None]
